FAERS Safety Report 7176482-1 (Version None)
Quarter: 2010Q4

REPORT INFORMATION
  Report Type: 
  Country: None (occurrence: None)
  Receive Date: 20101215
  Receipt Date: 20101215
  Transmission Date: 20110411
  Serious: Yes (Other)
  Sender: FDA-Public Use
  Company Number: None

PATIENT
  Sex: Female
  Weight: 63.05 kg

DRUGS (3)
  1. BUPROPION XL 300MG ACTAVIS [Suspect]
     Indication: MAJOR DEPRESSION
     Dosage: 300MG PO DAILY (MID-OCTOBER TO MID-NOVEMBER)
     Route: 048
     Dates: start: 20101001, end: 20101101
  2. ATENOLOL [Concomitant]
  3. ZYRTEC-D 12 HOUR [Concomitant]

REACTIONS (7)
  - ANXIETY [None]
  - DYSPNOEA [None]
  - HEADACHE [None]
  - MIDDLE INSOMNIA [None]
  - NAUSEA [None]
  - PALPITATIONS [None]
  - PRODUCT SUBSTITUTION ISSUE [None]
